FAERS Safety Report 4806777-5 (Version None)
Quarter: 2005Q4

REPORT INFORMATION
  Report Type: 
  Country: None (occurrence: None)
  Receive Date: 20051019
  Receipt Date: 20051019
  Transmission Date: 20060501
  Serious: Yes (Other)
  Sender: FDA-Public Use
  Company Number: None

PATIENT
  Age: 52 Year
  Sex: Male
  Weight: 110.2241 kg

DRUGS (2)
  1. PANCRELIPASE 20000/4500/25000 NDC# 5817703106 [Suspect]
     Indication: LIPASE INCREASED
     Dosage: 4 CAPSYLES WITH MEALS 250/500 PO
     Route: 048
     Dates: start: 20050914, end: 20051013
  2. PANCRELIPASE 20000/4500/25000 NDC# 5817703106 [Suspect]
     Indication: PANCREATITIS
     Dosage: 4 CAPSYLES WITH MEALS 250/500 PO
     Route: 048
     Dates: start: 20050914, end: 20051013

REACTIONS (9)
  - ABDOMINAL PAIN [None]
  - DEHYDRATION [None]
  - DIARRHOEA [None]
  - DIZZINESS [None]
  - FREQUENT BOWEL MOVEMENTS [None]
  - MALAISE [None]
  - NAUSEA [None]
  - PAIN [None]
  - STOMACH DISCOMFORT [None]
